FAERS Safety Report 10450459 (Version 2)
Quarter: 2014Q3

REPORT INFORMATION
  Report Type: Spontaneous
  Country: US (occurrence: US)
  Receive Date: 20140912
  Receipt Date: 20140912
  Transmission Date: 20150326
  Serious: Yes (Hospitalization)
  Sender: FDA-Public Use
  Company Number: US-GLAXOSMITHKLINE-A0730993A

PATIENT
  Sex: Male
  Weight: 118.2 kg

DRUGS (13)
  1. ROSIGLITAZONE MALEATE. [Suspect]
     Active Substance: ROSIGLITAZONE MALEATE
     Indication: DIABETES MELLITUS
     Dosage: 4MG TWICE PER DAY
     Route: 048
     Dates: start: 200608, end: 200612
  2. SIMVASTATIN. [Concomitant]
     Active Substance: SIMVASTATIN
  3. ASPIRIN. [Concomitant]
     Active Substance: ASPIRIN
  4. GLYBURIDE. [Concomitant]
     Active Substance: GLYBURIDE
  5. OMEGA 3 [Concomitant]
     Active Substance: OMEGA-3 FATTY ACIDS
  6. ALLOPURINOL. [Concomitant]
     Active Substance: ALLOPURINOL
  7. NIACIN. [Concomitant]
     Active Substance: NIACIN
  8. OMEPRAZOLE. [Concomitant]
     Active Substance: OMEPRAZOLE
  9. VARDENAFIL [Concomitant]
     Active Substance: VARDENAFIL
  10. AVANDIA [Suspect]
     Active Substance: ROSIGLITAZONE MALEATE
     Indication: TYPE 2 DIABETES MELLITUS
     Dosage: 8MG PER DAY
     Route: 048
     Dates: start: 2006, end: 20070101
  11. FELODIPINE. [Concomitant]
     Active Substance: FELODIPINE
  12. TEMAZEPAM. [Concomitant]
     Active Substance: TEMAZEPAM
  13. GEMFIBROZIL. [Concomitant]
     Active Substance: GEMFIBROZIL

REACTIONS (6)
  - Cardiac failure congestive [Unknown]
  - Pulmonary oedema [Unknown]
  - Oedema [Unknown]
  - Coronary artery disease [Unknown]
  - Pulmonary embolism [Unknown]
  - Ischaemia [Unknown]
